FAERS Safety Report 5635250-X (Version None)
Quarter: 2008Q1

REPORT INFORMATION
  Report Type: 
  Country: None (occurrence: None)
  Receive Date: 20080222
  Receipt Date: 20080221
  Transmission Date: 20080703
  Serious: Yes (Life-Threatening)
  Sender: FDA-Public Use
  Company Number: GB-BOEHRINGER INGELHEIM GMBH, GERMANY-2008-UK-00622UK

PATIENT
  Sex: Female

DRUGS (2)
  1. VIRAMUNE [Suspect]
     Route: 064
     Dates: start: 20030113
  2. COMBIVIR [Concomitant]
     Route: 048
     Dates: start: 20030113

REACTIONS (5)
  - CAESAREAN SECTION [None]
  - DRUG EXPOSURE DURING PREGNANCY [None]
  - ECHOCARDIOGRAM ABNORMAL [None]
  - FOETAL DISTRESS SYNDROME [None]
  - PREMATURE BABY [None]
